FAERS Safety Report 4662586-1 (Version None)
Quarter: 2005Q2

REPORT INFORMATION
  Report Type: 
  Country: None (occurrence: None)
  Receive Date: 20050516
  Receipt Date: 20050503
  Transmission Date: 20051028
  Serious: Yes (Disabling, Other)
  Sender: FDA-Public Use
  Company Number: 2005AC00689

PATIENT
  Age: 29 Year
  Sex: Female

DRUGS (8)
  1. BUPIVACAINE [Suspect]
     Indication: ANALGESIC EFFECT
     Dosage: TEST DOSE
     Route: 008
  2. BUPIVACAINE [Suspect]
     Route: 008
  3. BUPIVACAINE [Suspect]
     Route: 008
  4. LIDOCAINE [Suspect]
     Indication: ANAESTHESIA
     Route: 008
  5. FENTANYL [Suspect]
     Indication: ANALGESIC EFFECT
     Dosage: TEST DOSE
     Route: 008
  6. FENTANYL [Suspect]
     Route: 008
  7. FENTANYL [Suspect]
     Route: 008
  8. LEVOBUPIVACAINE [Suspect]
     Indication: ANAESTHESIA
     Route: 008

REACTIONS (10)
  - ANAESTHETIC COMPLICATION [None]
  - BLINDNESS CORTICAL [None]
  - CAESAREAN SECTION [None]
  - CEREBRAL VENOUS THROMBOSIS [None]
  - DRUG EXPOSURE DURING PREGNANCY [None]
  - ECLAMPSIA [None]
  - GRAND MAL CONVULSION [None]
  - HYPOTENSION [None]
  - POSTPARTUM DISORDER [None]
  - PYREXIA [None]
